FAERS Safety Report 8618788-2 (Version None)
Quarter: 2012Q3

REPORT INFORMATION
  Report Type: 
  Country: None (occurrence: None)
  Receive Date: 20120824
  Receipt Date: 20120820
  Transmission Date: 20120928
  Serious: Yes (Hospitalization)
  Sender: FDA-Public Use
  Company Number: US-JNJFOC-20120809653

PATIENT
  Sex: Female
  Weight: 86.18 kg

DRUGS (4)
  1. LYRICA [Concomitant]
     Indication: PAIN
     Dosage: ONCE DAILY
     Route: 048
     Dates: start: 20040101
  2. NUCYNTA [Suspect]
     Indication: PAIN
     Dosage: UP TO 4 TIMES DAILY
     Route: 048
     Dates: start: 20120101, end: 20120101
  3. CITALOPRAM HYDROBROMIDE [Concomitant]
     Indication: DEPRESSION
     Dosage: ONCE DAILY
     Route: 048
     Dates: start: 20100101
  4. CLONAZEPAM [Concomitant]
     Indication: ANXIETY
     Dosage: ONCE DAILY
     Route: 048
     Dates: start: 20100101

REACTIONS (2)
  - EMPYEMA [None]
  - PNEUMONIA [None]
